FAERS Safety Report 5142987-8 (Version None)
Quarter: 2006Q4

REPORT INFORMATION
  Report Type: 
  Country: None (occurrence: None)
  Receive Date: 20061103
  Receipt Date: 20061024
  Transmission Date: 20070319
  Serious: Yes (Hospitalization)
  Sender: FDA-Public Use
  Company Number: US-NOVOPROD-257982

PATIENT
  Age: 11 Year
  Sex: Female

DRUGS (2)
  1. NORDITROPIN [Suspect]
     Dosage: .9 MG, QD
     Route: 058
     Dates: start: 20060327, end: 20061019
  2. SYNTHROID [Concomitant]
     Indication: HYPOTHALAMO-PITUITARY DISORDERS
     Dosage: 50 UG, QD
     Route: 048

REACTIONS (2)
  - MEDULLOBLASTOMA [None]
  - RECURRENT CANCER [None]
